FAERS Safety Report 23583959 (Version 1)
Quarter: 2024Q1

REPORT INFORMATION
  Report Type: Spontaneous
  Country: JP (occurrence: JP)
  Receive Date: 20240301
  Receipt Date: 20240301
  Transmission Date: 20240409
  Serious: Yes (Hospitalization)
  Sender: FDA-Public Use
  Company Number: JP-DSJP-DSJ-2024-108718

PATIENT

DRUGS (2)
  1. DENOSUMAB [Suspect]
     Active Substance: DENOSUMAB
     Indication: Rheumatic disorder
     Dosage: 60 MILLIGRAM, Q6MO
     Route: 058
  2. KEVZARA [Suspect]
     Active Substance: SARILUMAB
     Indication: Rheumatic disorder
     Dosage: UNK
     Route: 065

REACTIONS (1)
  - Necrotising fasciitis [Unknown]

NARRATIVE: CASE EVENT DATE: 20240216
